FAERS Safety Report 11884534 (Version 1)
Quarter: 2015Q4

REPORT INFORMATION
  Report Type: Spontaneous
  Country: US (occurrence: None)
  Receive Date: 20151231
  Receipt Date: 20151231
  Transmission Date: 20160305
  Serious: Yes (Hospitalization)
  Sender: FDA-Public Use
  Company Number: None

PATIENT
  Age: 78 Year
  Sex: Male
  Weight: 56 kg

DRUGS (16)
  1. WARFARIN [Suspect]
     Active Substance: WARFARIN
     Indication: PULMONARY EMBOLISM
     Route: 048
  2. NORVASC [Concomitant]
     Active Substance: AMLODIPINE BESYLATE
  3. DOXERCALCIFEROL (HECTOROL) [Concomitant]
  4. SENNA [Concomitant]
     Active Substance: SENNA LEAF\SENNOSIDES\SENNOSIDES A AND B
  5. TRAMADOL. [Concomitant]
     Active Substance: TRAMADOL
  6. METOPROLOL (LOPRESSOR) [Concomitant]
  7. SENSIPAR [Concomitant]
     Active Substance: CINACALCET HYDROCHLORIDE
  8. SIMVASTATIN (ZOCOR) [Concomitant]
  9. CHOLECALFCIFEROL (VITAMIN D) [Concomitant]
  10. CYCLOBENZAPRINE (FLEXERIL) [Concomitant]
  11. WARFARIN [Suspect]
     Active Substance: WARFARIN
     Indication: DEEP VEIN THROMBOSIS
     Route: 048
  12. ACETAMINOPHEN. [Concomitant]
     Active Substance: ACETAMINOPHEN
  13. LIDOCAINE (LIDODERM) [Concomitant]
  14. OMEPRAZOLE (PRILOSEC) [Concomitant]
  15. SYNTHROID [Concomitant]
     Active Substance: LEVOTHYROXINE SODIUM
  16. LISINOPRIL (PRINIVIL; ZESTRIL) [Concomitant]
     Active Substance: LISINOPRIL

REACTIONS (5)
  - Fatigue [None]
  - Hypersomnia [None]
  - Renal haematoma [None]
  - Shock haemorrhagic [None]
  - Haemoglobin decreased [None]

NARRATIVE: CASE EVENT DATE: 20151119
